FAERS Safety Report 11337631 (Version 1)
Quarter: 2015Q3

REPORT INFORMATION
  Report Type: Spontaneous
  Country: US (occurrence: US)
  Receive Date: 20150803
  Receipt Date: 20150803
  Transmission Date: 20151125
  Serious: Yes (Other)
  Sender: FDA-Public Use
  Company Number: US-ELI_LILLY_AND_COMPANY-US200909004235

PATIENT
  Age: 23 Year
  Sex: Male

DRUGS (3)
  1. FLUOXETINE [Concomitant]
     Active Substance: FLUOXETINE\FLUOXETINE HYDROCHLORIDE
     Indication: DEPRESSION
     Dosage: 20 MG, UNK
  2. ZYPREXA [Suspect]
     Active Substance: OLANZAPINE
     Indication: INTERMITTENT EXPLOSIVE DISORDER
     Dosage: 15 MG, DAILY (1/D)
     Route: 048
     Dates: start: 20090715
  3. ZYPREXA [Suspect]
     Active Substance: OLANZAPINE
     Dosage: 1 D/F, UNK
     Dates: start: 20090913

REACTIONS (2)
  - Weight increased [Unknown]
  - Off label use [Unknown]

NARRATIVE: CASE EVENT DATE: 20090715
